FAERS Safety Report 9624215 (Version 1)
Quarter: 2013Q4

REPORT INFORMATION
  Report Type: Report from Study
  Country: GB (occurrence: GB)
  Receive Date: 20131015
  Receipt Date: 20131015
  Transmission Date: 20140711
  Serious: Yes (Hospitalization)
  Sender: FDA-Public Use
  Company Number: GB-INCYTE CORPORATION-2013IN002334

PATIENT
  Sex: 0

DRUGS (14)
  1. INC424 [Suspect]
     Indication: POLYCYTHAEMIA VERA
     Dosage: 20 MG, DAILY
     Route: 048
     Dates: start: 20130304
  2. LEVOTHYROXINE [Concomitant]
  3. ADCAL [Concomitant]
  4. BENDROFLUMETHIAZIDE [Concomitant]
  5. PENTOXYFYLLINE [Concomitant]
  6. TRAMADOL [Concomitant]
     Dosage: UNK
     Dates: start: 20130314
  7. CHLORAMPHENICOL [Concomitant]
     Dosage: UNK
     Dates: start: 20130307
  8. GABAPENTIN [Concomitant]
     Dosage: UNK
     Dates: start: 201307
  9. OMEPRAZOLE [Concomitant]
  10. ALENDRONIC ACID [Concomitant]
  11. ASPIRIN [Concomitant]
  12. ATENOLOL [Concomitant]
  13. ADIZEM [Concomitant]
  14. PREDNISOLONE [Concomitant]

REACTIONS (1)
  - Myoclonus [Recovered/Resolved]
